FAERS Safety Report 8765271 (Version 1)
Quarter: 2012Q4

REPORT INFORMATION
  Report Type: Report from Study
  Country: US (occurrence: US)
  Receive Date: 20120901
  Receipt Date: 20120901
  Transmission Date: 20130627
  Serious: Yes (Other)
  Sender: FDA-Public Use
  Company Number: US-TEVA-356301USA

PATIENT
  Age: 1 Year
  Sex: Female
  Weight: 8.6 kg

DRUGS (7)
  1. LESTAURTINIB [Suspect]
     Indication: ACUTE LYMPHOCYTIC LEUKAEMIA
     Dosage: 3.5 mg/kg/day BID;days 2-6,30-34,58-62
     Route: 048
     Dates: start: 201101
  2. MERCAPTOPURINE [Suspect]
     Indication: ACUTE LYMPHOCYTIC LEUKAEMIA
     Dosage: 75 mg/m2/dose;days8-28,36-56,64-84
     Route: 048
     Dates: end: 20120423
  3. METHOTREXATE [Suspect]
     Indication: ACUTE LYMPHOCYTIC LEUKAEMIA
     Dosage: 20 mg/m2/dose; days8,15,22,36,43,50,64,71,78
     Dates: end: 20120420
  4. VINCRISTINE [Suspect]
     Indication: ACUTE LYMPHOCYTIC LEUKAEMIA
     Dosage: 0.05 mg/kg/dose; days 1,29,57
     Route: 042
     Dates: end: 20120406
  5. BACTRIM [Concomitant]
  6. CLINDAMYCIN [Concomitant]
  7. OMNICEF [Concomitant]

REACTIONS (1)
  - Alanine aminotransferase increased [Recovered/Resolved]
